FAERS Safety Report 18382177 (Version 1)
Quarter: 2020Q4

REPORT INFORMATION
  Report Type: Spontaneous
  Country: US (occurrence: US)
  Receive Date: 20201013
  Receipt Date: 20201013
  Transmission Date: 20210114
  Serious: Yes (Hospitalization)
  Sender: FDA-Public Use
  Company Number: None

PATIENT
  Age: 84 Year
  Sex: Male
  Weight: 70 kg

DRUGS (1)
  1. CETUXIMAB (CETUXIMAB 2MG/ML INJ, 100ML) [Suspect]
     Active Substance: CETUXIMAB
     Indication: COLON CANCER METASTATIC
     Route: 042
     Dates: start: 20200722, end: 20200722

REACTIONS (5)
  - Hypotension [None]
  - Anal incontinence [None]
  - Loss of consciousness [None]
  - Blood pressure systolic decreased [None]
  - Respiration abnormal [None]

NARRATIVE: CASE EVENT DATE: 20200722
